FAERS Safety Report 4392570-7 (Version None)
Quarter: 2004Q3

REPORT INFORMATION
  Report Type: 
  Country: None (occurrence: None)
  Receive Date: 20040708
  Receipt Date: 20040629
  Transmission Date: 20050211
  Serious: Yes (Other)
  Sender: FDA-Public Use
  Company Number: 200416529GDDC

PATIENT
  Sex: Female

DRUGS (5)
  1. METRONIDAZOLE [Suspect]
     Dosage: DOSE: UNK
  2. PAROXETINE HCL [Suspect]
     Dosage: DOSE: UNK
     Route: 048
  3. LORATADINE [Suspect]
     Dosage: DOSE: UNK
     Route: 048
  4. CIMETIDINE [Suspect]
     Dosage: DOSE: UNK
  5. ACETAMINOPHEN [Suspect]
     Dosage: DOSE: UNK

REACTIONS (4)
  - ABORTION SPONTANEOUS [None]
  - ALCOHOL USE [None]
  - DRUG EXPOSURE DURING PREGNANCY [None]
  - OVERDOSE [None]
